FAERS Safety Report 11628356 (Version 9)
Quarter: 2016Q2

REPORT INFORMATION
  Report Type: Spontaneous
  Country: CA (occurrence: CA)
  Receive Date: 20151014
  Receipt Date: 20160609
  Transmission Date: 20160815
  Serious: Yes (Hospitalization, Other)
  Sender: FDA-Public Use
  Company Number: CA-ROCHE-1645466

PATIENT
  Age: 63 Year
  Sex: Female

DRUGS (7)
  1. XOLAIR [Suspect]
     Active Substance: OMALIZUMAB
     Indication: ASTHMA
     Route: 058
     Dates: start: 20150722
  2. SALBUTAMOL [Concomitant]
     Active Substance: ALBUTEROL
  3. XOLAIR [Suspect]
     Active Substance: OMALIZUMAB
     Route: 058
     Dates: start: 20160414
  4. XOLAIR [Suspect]
     Active Substance: OMALIZUMAB
     Route: 058
     Dates: start: 20150819
  5. XOLAIR [Suspect]
     Active Substance: OMALIZUMAB
     Route: 058
     Dates: start: 20160331
  6. XOLAIR [Suspect]
     Active Substance: OMALIZUMAB
     Route: 058
     Dates: start: 20160428
  7. IMURAN [Concomitant]
     Active Substance: AZATHIOPRINE

REACTIONS (22)
  - Middle insomnia [Unknown]
  - Sinusitis [Unknown]
  - Temperature intolerance [Recovered/Resolved]
  - Nasopharyngitis [Unknown]
  - Forced expiratory volume decreased [Unknown]
  - Pruritus [Unknown]
  - Blood pressure increased [Unknown]
  - Drug ineffective [Unknown]
  - Choking [Unknown]
  - Secretion discharge [Unknown]
  - Rhinitis [Unknown]
  - Wheezing [Unknown]
  - Cold sweat [Unknown]
  - Bronchospasm [Unknown]
  - Pain in extremity [Unknown]
  - Asthma [Unknown]
  - Nausea [Recovered/Resolved]
  - Pneumonia [Unknown]
  - Eczema [Not Recovered/Not Resolved]
  - Influenza like illness [Unknown]
  - Conjunctivitis allergic [Unknown]
  - Malaise [Unknown]

NARRATIVE: CASE EVENT DATE: 20150722
